FAERS Safety Report 5901778-8 (Version None)
Quarter: 2008Q3

REPORT INFORMATION
  Report Type: 
  Country: None (occurrence: None)
  Receive Date: 20080926
  Receipt Date: 20080926
  Transmission Date: 20090109
  Serious: No
  Sender: FDA-Public Use
  Company Number: None

PATIENT
  Age: 60 Year
  Weight: 100.6985 kg

DRUGS (8)
  1. CIPRO [Suspect]
     Indication: URINARY TRACT INFECTION
     Dates: start: 20080405, end: 20080410
  2. CIPRO [Suspect]
     Indication: URINARY TRACT INFECTION
     Dates: start: 20080505, end: 20080515
  3. BOOT [Concomitant]
  4. AIR CAST [Concomitant]
  5. ARIZONA BRACE [Concomitant]
  6. WALKER [Concomitant]
  7. SHOWER BENCH [Concomitant]
  8. TUB HANDLE [Concomitant]

REACTIONS (3)
  - PAIN IN EXTREMITY [None]
  - TENDON RUPTURE [None]
  - TENDONITIS [None]
